FAERS Safety Report 5024486-7 (Version None)
Quarter: 2006Q2

REPORT INFORMATION
  Report Type: 
  Country: None (occurrence: None)
  Receive Date: 20060609
  Receipt Date: 20060609
  Transmission Date: 20061013
  Serious: Yes (Death, Hospitalization)
  Sender: FDA-Public Use
  Company Number: None

PATIENT
  Sex: Male
  Weight: 106 kg

DRUGS (3)
  1. CYCLOSPORINE [Suspect]
     Indication: ACUTE MYELOID LEUKAEMIA
     Dosage: 5230 MG
     Dates: start: 20060518, end: 20060520
  2. CYTARABINE [Suspect]
     Dosage: 2800 MG
     Dates: start: 20060518, end: 20060524
  3. DAUNORUBICIN HCL [Suspect]
     Dosage: 270 MG
     Dates: start: 20060518, end: 20060520

REACTIONS (8)
  - BONE MARROW FAILURE [None]
  - CAECITIS [None]
  - ENTEROCOCCAL BACTERAEMIA [None]
  - FEBRILE NEUTROPENIA [None]
  - GENERAL PHYSICAL HEALTH DETERIORATION [None]
  - RENAL FAILURE [None]
  - SKIN DISCOLOURATION [None]
  - SKIN HYPERPIGMENTATION [None]
